FAERS Safety Report 7280599-0 (Version None)
Quarter: 2011Q1

REPORT INFORMATION
  Report Type: 
  Country: None (occurrence: None)
  Receive Date: 20110208
  Receipt Date: 20110204
  Transmission Date: 20110831
  Serious: Yes (Other)
  Sender: FDA-Public Use
  Company Number: A0912302A

PATIENT
  Sex: Female

DRUGS (2)
  1. BIRTH CONTROL [Suspect]
     Indication: CONTRACEPTION
     Route: 065
  2. ALLI [Suspect]
     Route: 048

REACTIONS (4)
  - DRUG EXPOSURE DURING PREGNANCY [None]
  - UNINTENDED PREGNANCY [None]
  - DIARRHOEA [None]
  - DRUG INTERACTION [None]
